FAERS Safety Report 6977873-1 (Version None)
Quarter: 2010Q3

REPORT INFORMATION
  Report Type: 
  Country: None (occurrence: None)
  Receive Date: 20100913
  Receipt Date: 20100908
  Transmission Date: 20110219
  Serious: No
  Sender: FDA-Public Use
  Company Number: US-BIOGENIDEC-2010BI030987

PATIENT
  Age: 51 Year
  Sex: Male

DRUGS (2)
  1. AVONEX [Suspect]
     Indication: MULTIPLE SCLEROSIS
     Route: 030
     Dates: start: 20010301, end: 20040223
  2. AVONEX [Suspect]
     Route: 030
     Dates: start: 20100730

REACTIONS (4)
  - ANXIETY [None]
  - CHILLS [None]
  - NEURALGIA [None]
  - PSYCHOTIC BEHAVIOUR [None]
